FAERS Safety Report 24429307 (Version 1)
Quarter: 2024Q4

REPORT INFORMATION
  Report Type: Spontaneous
  Country: CA (occurrence: CA)
  Receive Date: 20241011
  Receipt Date: 20241011
  Transmission Date: 20250115
  Serious: Yes (Death, Other)
  Sender: BRISTOL MYERS SQUIBB
  Company Number: CA-BRISTOL-MYERS SQUIBB COMPANY-2024-160600

PATIENT
  Age: 48 Year
  Sex: Female
  Weight: 68 kg

DRUGS (236)
  1. ORENCIA [Suspect]
     Active Substance: ABATACEPT
     Indication: Rheumatoid arthritis
     Route: 048
  2. ORENCIA [Suspect]
     Active Substance: ABATACEPT
     Route: 064
  3. ORENCIA [Suspect]
     Active Substance: ABATACEPT
     Route: 048
  4. ORENCIA [Suspect]
     Active Substance: ABATACEPT
     Indication: Rheumatoid arthritis
     Route: 058
  5. ORENCIA [Suspect]
     Active Substance: ABATACEPT
     Route: 058
  6. ORENCIA [Suspect]
     Active Substance: ABATACEPT
     Route: 058
  7. ORENCIA [Suspect]
     Active Substance: ABATACEPT
     Route: 058
  8. ORENCIA [Suspect]
     Active Substance: ABATACEPT
     Route: 058
  9. ORENCIA [Suspect]
     Active Substance: ABATACEPT
     Route: 058
  10. ORENCIA [Suspect]
     Active Substance: ABATACEPT
     Route: 058
  11. ORENCIA [Suspect]
     Active Substance: ABATACEPT
     Route: 058
  12. ORENCIA [Suspect]
     Active Substance: ABATACEPT
     Route: 058
  13. ORENCIA [Suspect]
     Active Substance: ABATACEPT
     Indication: Rheumatoid arthritis
     Route: 042
  14. ORENCIA [Suspect]
     Active Substance: ABATACEPT
     Route: 042
  15. ACETAMINOPHEN [Concomitant]
     Active Substance: ACETAMINOPHEN
     Indication: Product used for unknown indication
  16. ACTEMRA [Concomitant]
     Active Substance: TOCILIZUMAB
     Indication: Rheumatoid arthritis
     Route: 042
  17. ACTEMRA [Concomitant]
     Active Substance: TOCILIZUMAB
     Route: 042
  18. ACTEMRA [Concomitant]
     Active Substance: TOCILIZUMAB
     Route: 016
  19. ACTEMRA [Concomitant]
     Active Substance: TOCILIZUMAB
     Route: 048
  20. ACTEMRA [Concomitant]
     Active Substance: TOCILIZUMAB
     Route: 042
  21. ACTEMRA [Concomitant]
     Active Substance: TOCILIZUMAB
  22. ACTEMRA [Concomitant]
     Active Substance: TOCILIZUMAB
     Route: 061
  23. ACTEMRA [Concomitant]
     Active Substance: TOCILIZUMAB
     Route: 064
  24. ACTEMRA [Concomitant]
     Active Substance: TOCILIZUMAB
     Route: 042
  25. ACTEMRA [Concomitant]
     Active Substance: TOCILIZUMAB
     Route: 058
  26. ADALIMUMAB [Concomitant]
     Active Substance: ADALIMUMAB
     Indication: Product used for unknown indication
     Dosage: SOLUTION SUBCUTANEOUS
     Route: 058
  27. ADALIMUMAB [Concomitant]
     Active Substance: ADALIMUMAB
     Route: 064
  28. ALENDRONIC ACID [Concomitant]
     Active Substance: ALENDRONIC ACID
     Indication: Rheumatoid arthritis
     Route: 016
  29. ALENDRONIC ACID [Concomitant]
     Active Substance: ALENDRONIC ACID
     Route: 048
  30. PREDNISONE [Concomitant]
     Active Substance: PREDNISONE
     Indication: Product used for unknown indication
     Route: 064
  31. PREDNISONE [Concomitant]
     Active Substance: PREDNISONE
     Route: 048
  32. PREDNISONE [Concomitant]
     Active Substance: PREDNISONE
     Route: 048
  33. PREDNISONE [Concomitant]
     Active Substance: PREDNISONE
     Route: 048
  34. ARAVA [Concomitant]
     Active Substance: LEFLUNOMIDE
     Indication: Rheumatoid arthritis
     Route: 048
  35. ARAVA [Concomitant]
     Active Substance: LEFLUNOMIDE
     Route: 048
  36. ARAVA [Concomitant]
     Active Substance: LEFLUNOMIDE
     Route: 005
  37. ARAVA [Concomitant]
     Active Substance: LEFLUNOMIDE
  38. AZATHIOPRINE [Concomitant]
     Active Substance: AZATHIOPRINE
     Indication: Product used for unknown indication
  39. BETAMETHASONE VALERATE [Concomitant]
     Active Substance: BETAMETHASONE VALERATE
     Indication: Rheumatoid arthritis
     Route: 049
  40. BETAMETHASONE VALERATE [Concomitant]
     Active Substance: BETAMETHASONE VALERATE
  41. AMINOSALICYLATE CALCIUM [Concomitant]
     Active Substance: AMINOSALICYLATE CALCIUM
     Indication: Product used for unknown indication
  42. CALCIUM CARBONATE [Concomitant]
     Active Substance: CALCIUM CARBONATE
     Indication: Product used for unknown indication
     Route: 016
  43. CALCIUM CARBONATE [Concomitant]
     Active Substance: CALCIUM CARBONATE
  44. CALCIUM CARBONATE [Concomitant]
     Active Substance: CALCIUM CARBONATE
  45. CERTOLIZUMAB PEGOL [Concomitant]
     Active Substance: CERTOLIZUMAB PEGOL
     Indication: Rheumatoid arthritis
     Route: 058
  46. CERTOLIZUMAB PEGOL [Concomitant]
     Active Substance: CERTOLIZUMAB PEGOL
     Route: 064
  47. CETIRIZINE HYDROCHLORIDE [Concomitant]
     Active Substance: CETIRIZINE HYDROCHLORIDE
     Indication: Rheumatoid arthritis
     Route: 064
  48. CETIRIZINE HYDROCHLORIDE [Concomitant]
     Active Substance: CETIRIZINE HYDROCHLORIDE
     Route: 048
  49. CETIRIZINE HYDROCHLORIDE [Concomitant]
     Active Substance: CETIRIZINE HYDROCHLORIDE
     Route: 067
  50. CETIRIZINE HYDROCHLORIDE [Concomitant]
     Active Substance: CETIRIZINE HYDROCHLORIDE
     Route: 048
  51. CETIRIZINE HYDROCHLORIDE [Concomitant]
     Active Substance: CETIRIZINE HYDROCHLORIDE
     Route: 048
  52. CETIRIZINE HYDROCHLORIDE [Concomitant]
     Active Substance: CETIRIZINE HYDROCHLORIDE
  53. CHLORHEXIDINE ACETATE [Concomitant]
     Active Substance: CHLORHEXIDINE ACETATE
     Indication: Product used for unknown indication
     Route: 061
  54. CHLORHEXIDINE GLUCONATE\ISOPROPYL ALCOHOL [Concomitant]
     Active Substance: CHLORHEXIDINE GLUCONATE\ISOPROPYL ALCOHOL
     Indication: Product used for unknown indication
  55. CIMZIA [Concomitant]
     Active Substance: CERTOLIZUMAB PEGOL
     Indication: Rheumatoid arthritis
     Route: 064
  56. CIMZIA [Concomitant]
     Active Substance: CERTOLIZUMAB PEGOL
     Route: 058
  57. CORTISONE ACETATE [Concomitant]
     Active Substance: CORTISONE ACETATE
     Indication: Rheumatoid arthritis
     Route: 064
  58. CORTISONE ACETATE [Concomitant]
     Active Substance: CORTISONE ACETATE
     Route: 048
  59. CORTISONE ACETATE [Concomitant]
     Active Substance: CORTISONE ACETATE
     Route: 048
  60. CORTISONE ACETATE [Concomitant]
     Active Substance: CORTISONE ACETATE
     Route: 061
  61. CORTISONE ACETATE [Concomitant]
     Active Substance: CORTISONE ACETATE
     Route: 061
  62. COSENTYX [Concomitant]
     Active Substance: SECUKINUMAB
     Indication: Rheumatoid arthritis
     Route: 005
  63. DESOXIMETASONE [Concomitant]
     Active Substance: DESOXIMETASONE
     Indication: Rheumatoid arthritis
     Route: 048
  64. DESOXIMETASONE [Concomitant]
     Active Substance: DESOXIMETASONE
     Route: 067
  65. DESOXIMETASONE [Concomitant]
     Active Substance: DESOXIMETASONE
     Route: 058
  66. DESOXIMETASONE [Concomitant]
     Active Substance: DESOXIMETASONE
     Route: 048
  67. DESOXIMETASONE [Concomitant]
     Active Substance: DESOXIMETASONE
     Route: 067
  68. DESOXIMETASONE [Concomitant]
     Active Substance: DESOXIMETASONE
     Route: 003
  69. DESOXIMETASONE [Concomitant]
     Active Substance: DESOXIMETASONE
     Route: 061
  70. DESOXIMETASONE [Concomitant]
     Active Substance: DESOXIMETASONE
     Route: 003
  71. DESOXIMETASONE [Concomitant]
     Active Substance: DESOXIMETASONE
     Route: 048
  72. DESOXIMETASONE [Concomitant]
     Active Substance: DESOXIMETASONE
     Route: 003
  73. DESOXIMETASONE [Concomitant]
     Active Substance: DESOXIMETASONE
     Route: 064
  74. DICLOFENAC POTASSIUM [Concomitant]
     Active Substance: DICLOFENAC POTASSIUM
     Indication: Product used for unknown indication
     Dosage: TABLETS
     Route: 058
  75. DICLOFENAC SODIUM [Concomitant]
     Active Substance: DICLOFENAC SODIUM
     Indication: Product used for unknown indication
     Route: 064
  76. DICLOFENAC SODIUM [Concomitant]
     Active Substance: DICLOFENAC SODIUM
     Route: 064
  77. DIPHENHYDRAMINE HYDROCHLORIDE [Concomitant]
     Active Substance: DIPHENHYDRAMINE HYDROCHLORIDE
     Indication: Product used for unknown indication
  78. ENBREL [Concomitant]
     Active Substance: ETANERCEPT
     Indication: Rheumatoid arthritis
     Route: 064
  79. ENBREL [Concomitant]
     Active Substance: ETANERCEPT
     Route: 064
  80. ENBREL [Concomitant]
     Active Substance: ETANERCEPT
     Route: 058
  81. ENBREL [Concomitant]
     Active Substance: ETANERCEPT
     Route: 058
  82. ENBREL [Concomitant]
     Active Substance: ETANERCEPT
     Route: 058
  83. ENBREL [Concomitant]
     Active Substance: ETANERCEPT
     Route: 058
  84. ENBREL [Concomitant]
     Active Substance: ETANERCEPT
     Route: 058
  85. ENBREL [Concomitant]
     Active Substance: ETANERCEPT
     Route: 058
  86. ERELZI [Concomitant]
     Active Substance: ETANERCEPT-SZZS
     Indication: Rheumatoid arthritis
     Route: 058
  87. ERELZI [Concomitant]
     Active Substance: ETANERCEPT-SZZS
     Route: 058
  88. ERELZI [Concomitant]
     Active Substance: ETANERCEPT-SZZS
  89. FLUMETHASONE PIVALATE [Concomitant]
     Active Substance: FLUMETHASONE PIVALATE
     Indication: Rheumatoid arthritis
     Route: 058
  90. FOLIC ACID [Concomitant]
     Active Substance: FOLIC ACID
     Indication: Rheumatoid arthritis
  91. FOLIC ACID [Concomitant]
     Active Substance: FOLIC ACID
  92. FOLIC ACID [Concomitant]
     Active Substance: FOLIC ACID
  93. FOLIC ACID [Concomitant]
     Active Substance: FOLIC ACID
  94. FOLIC ACID [Concomitant]
     Active Substance: FOLIC ACID
  95. FOLIC ACID [Concomitant]
     Active Substance: FOLIC ACID
     Route: 048
  96. FOLIC ACID [Concomitant]
     Active Substance: FOLIC ACID
     Route: 048
  97. FOLIC ACID [Concomitant]
     Active Substance: FOLIC ACID
  98. FOLIC ACID [Concomitant]
     Active Substance: FOLIC ACID
  99. FOLIC ACID [Concomitant]
     Active Substance: FOLIC ACID
  100. FOLIC ACID [Concomitant]
     Active Substance: FOLIC ACID
     Route: 048
  101. FOLIC ACID [Concomitant]
     Active Substance: FOLIC ACID
     Route: 058
  102. FOLIC ACID [Concomitant]
     Active Substance: FOLIC ACID
  103. FOLIC ACID [Concomitant]
     Active Substance: FOLIC ACID
  104. FOLIC ACID [Concomitant]
     Active Substance: FOLIC ACID
     Route: 048
  105. FOSAMAX [Concomitant]
     Active Substance: ALENDRONATE SODIUM
     Indication: Rheumatoid arthritis
     Route: 064
  106. FOSAMAX [Concomitant]
     Active Substance: ALENDRONATE SODIUM
     Route: 016
  107. FOSAMAX [Concomitant]
     Active Substance: ALENDRONATE SODIUM
     Route: 048
  108. FOSAMAX [Concomitant]
     Active Substance: ALENDRONATE SODIUM
     Route: 058
  109. HUMIRA [Concomitant]
     Active Substance: ADALIMUMAB
     Indication: Rheumatoid arthritis
     Dosage: SOLUTION SUBCUTANEOUS
     Route: 058
  110. HUMIRA [Concomitant]
     Active Substance: ADALIMUMAB
     Indication: Psoriatic arthropathy
     Route: 058
  111. HUMIRA [Concomitant]
     Active Substance: ADALIMUMAB
     Route: 064
  112. HUMIRA [Concomitant]
     Active Substance: ADALIMUMAB
     Route: 064
  113. HUMIRA [Concomitant]
     Active Substance: ADALIMUMAB
     Route: 058
  114. HUMIRA [Concomitant]
     Active Substance: ADALIMUMAB
     Route: 058
  115. HUMIRA [Concomitant]
     Active Substance: ADALIMUMAB
     Route: 064
  116. HYDROXYCHLOROQUINE [Concomitant]
     Active Substance: HYDROXYCHLOROQUINE
     Indication: Rheumatoid arthritis
     Route: 048
  117. HYDROXYCHLOROQUINE [Concomitant]
     Active Substance: HYDROXYCHLOROQUINE
     Route: 005
  118. HYDROXYCHLOROQUINE [Concomitant]
     Active Substance: HYDROXYCHLOROQUINE
     Route: 064
  119. HYDROXYCHLOROQUINE SULFATE [Concomitant]
     Active Substance: HYDROXYCHLOROQUINE SULFATE
     Indication: Rheumatoid arthritis
     Route: 048
  120. HYDROXYCHLOROQUINE SULFATE [Concomitant]
     Active Substance: HYDROXYCHLOROQUINE SULFATE
  121. HYDROXYCHLOROQUINE SULFATE [Concomitant]
     Active Substance: HYDROXYCHLOROQUINE SULFATE
  122. HYDROXYCHLOROQUINE SULFATE [Concomitant]
     Active Substance: HYDROXYCHLOROQUINE SULFATE
  123. IBUPROFEN [Concomitant]
     Active Substance: IBUPROFEN
     Indication: Product used for unknown indication
  124. METHOTREXATE [Concomitant]
     Active Substance: METHOTREXATE
     Indication: Rheumatoid arthritis
  125. METHOTREXATE [Concomitant]
     Active Substance: METHOTREXATE
     Route: 058
  126. METHOTREXATE [Concomitant]
     Active Substance: METHOTREXATE
     Route: 013
  127. METHOTREXATE [Concomitant]
     Active Substance: METHOTREXATE
     Route: 058
  128. METHOTREXATE [Concomitant]
     Active Substance: METHOTREXATE
     Route: 013
  129. METHOTREXATE [Concomitant]
     Active Substance: METHOTREXATE
     Route: 048
  130. METHOTREXATE [Concomitant]
     Active Substance: METHOTREXATE
     Route: 048
  131. METHOTREXATE [Concomitant]
     Active Substance: METHOTREXATE
     Route: 048
  132. METHOTREXATE [Concomitant]
     Active Substance: METHOTREXATE
     Route: 064
  133. METHOTREXATE [Concomitant]
     Active Substance: METHOTREXATE
     Route: 058
  134. METHOTREXATE [Concomitant]
     Active Substance: METHOTREXATE
     Route: 048
  135. METHOTREXATE [Concomitant]
     Active Substance: METHOTREXATE
     Route: 042
  136. METHOTREXATE [Concomitant]
     Active Substance: METHOTREXATE
  137. METHOTREXATE [Concomitant]
     Active Substance: METHOTREXATE
  138. METHOTREXATE [Concomitant]
     Active Substance: METHOTREXATE
  139. METHOTREXATE [Concomitant]
     Active Substance: METHOTREXATE
  140. METHOTREXATE [Concomitant]
     Active Substance: METHOTREXATE
     Route: 064
  141. METHOTREXATE [Concomitant]
     Active Substance: METHOTREXATE
  142. METHOTREXATE [Concomitant]
     Active Substance: METHOTREXATE
     Route: 064
  143. METHOTREXATE [Concomitant]
     Active Substance: METHOTREXATE
     Route: 048
  144. METHOTREXATE [Concomitant]
     Active Substance: METHOTREXATE
  145. METHOTREXATE [Concomitant]
     Active Substance: METHOTREXATE
     Route: 048
  146. METHOTREXATE [Concomitant]
     Active Substance: METHOTREXATE
     Route: 013
  147. METHOTREXATE [Concomitant]
     Active Substance: METHOTREXATE
     Route: 048
  148. METHYLPREDNISOLONE SODIUM SUCCINATE [Concomitant]
     Active Substance: METHYLPREDNISOLONE SODIUM SUCCINATE
     Indication: Product used for unknown indication
     Route: 064
  149. MINOCYCLINE HYDROCHLORIDE [Concomitant]
     Active Substance: MINOCYCLINE HYDROCHLORIDE
     Indication: Rheumatoid arthritis
  150. MORPHINE [Concomitant]
     Active Substance: MORPHINE
     Indication: Product used for unknown indication
  151. NEOMYCIN [Concomitant]
     Active Substance: NEOMYCIN
     Indication: Product used for unknown indication
     Route: 048
  152. NICOTINAMIDE [Concomitant]
     Active Substance: NIACINAMIDE
     Indication: Product used for unknown indication
  153. OTEZLA [Concomitant]
     Active Substance: APREMILAST
     Indication: Product used for unknown indication
     Route: 048
  154. PANTOPRAZOLE SODIUM [Concomitant]
     Active Substance: PANTOPRAZOLE SODIUM
     Indication: Dyspepsia
     Route: 048
  155. PERIOGARD [Concomitant]
     Active Substance: CHLORHEXIDINE GLUCONATE
     Indication: Product used for unknown indication
  156. PHTHALYLSULFATHIAZOLE [Concomitant]
     Active Substance: PHTHALYLSULFATHIAZOLE
     Indication: Rheumatoid arthritis
     Route: 016
  157. PHTHALYLSULFATHIAZOLE [Concomitant]
     Active Substance: PHTHALYLSULFATHIAZOLE
     Route: 064
  158. PHTHALYLSULFATHIAZOLE [Concomitant]
     Active Substance: PHTHALYLSULFATHIAZOLE
     Route: 064
  159. PHTHALYLSULFATHIAZOLE [Concomitant]
     Active Substance: PHTHALYLSULFATHIAZOLE
  160. PHTHALYLSULFATHIAZOLE [Concomitant]
     Active Substance: PHTHALYLSULFATHIAZOLE
     Route: 048
  161. PHTHALYLSULFATHIAZOLE [Concomitant]
     Active Substance: PHTHALYLSULFATHIAZOLE
     Route: 016
  162. PREDNISONE [Concomitant]
     Active Substance: PREDNISONE
     Indication: Rheumatoid arthritis
     Route: 048
  163. PREDNISONE [Concomitant]
     Active Substance: PREDNISONE
     Indication: Condition aggravated
  164. PREDNISONE [Concomitant]
     Active Substance: PREDNISONE
     Route: 064
  165. PREDNISONE [Concomitant]
     Active Substance: PREDNISONE
     Route: 061
  166. PREDNISONE [Concomitant]
     Active Substance: PREDNISONE
     Route: 042
  167. PREDNISONE [Concomitant]
     Active Substance: PREDNISONE
     Route: 048
  168. PREDNISONE [Concomitant]
     Active Substance: PREDNISONE
  169. PREDNISONE [Concomitant]
     Active Substance: PREDNISONE
     Route: 016
  170. PREDNISONE [Concomitant]
     Active Substance: PREDNISONE
     Route: 048
  171. PREDNISONE [Concomitant]
     Active Substance: PREDNISONE
     Route: 048
  172. PREDNISONE [Concomitant]
     Active Substance: PREDNISONE
  173. PREDNISONE [Concomitant]
     Active Substance: PREDNISONE
     Route: 061
  174. PREDNISONE [Concomitant]
     Active Substance: PREDNISONE
  175. PREDNISONE [Concomitant]
     Active Substance: PREDNISONE
     Route: 048
  176. PREDNISONE [Concomitant]
     Active Substance: PREDNISONE
  177. PREDNISONE [Concomitant]
     Active Substance: PREDNISONE
     Route: 064
  178. PREDNISONE [Concomitant]
     Active Substance: PREDNISONE
     Route: 048
  179. PREDNISONE [Concomitant]
     Active Substance: PREDNISONE
     Route: 048
  180. PREDNISONE [Concomitant]
     Active Substance: PREDNISONE
  181. PSEUDOEPHEDRINE HYDROCHLORIDE [Concomitant]
     Active Substance: PSEUDOEPHEDRINE HYDROCHLORIDE
     Indication: Rheumatoid arthritis
  182. PSEUDOEPHEDRINE HYDROCHLORIDE [Concomitant]
     Active Substance: PSEUDOEPHEDRINE HYDROCHLORIDE
     Route: 048
  183. PSEUDOEPHEDRINE HYDROCHLORIDE [Concomitant]
     Active Substance: PSEUDOEPHEDRINE HYDROCHLORIDE
     Route: 048
  184. PSEUDOEPHEDRINE HYDROCHLORIDE [Concomitant]
     Active Substance: PSEUDOEPHEDRINE HYDROCHLORIDE
  185. PSEUDOEPHEDRINE HYDROCHLORIDE [Concomitant]
     Active Substance: PSEUDOEPHEDRINE HYDROCHLORIDE
     Route: 064
  186. CETIRIZINE HYDROCHLORIDE\PSEUDOEPHEDRINE HYDROCHLORIDE [Concomitant]
     Active Substance: CETIRIZINE HYDROCHLORIDE\PSEUDOEPHEDRINE HYDROCHLORIDE
     Indication: Rheumatoid arthritis
     Route: 067
  187. CETIRIZINE HYDROCHLORIDE\PSEUDOEPHEDRINE HYDROCHLORIDE [Concomitant]
     Active Substance: CETIRIZINE HYDROCHLORIDE\PSEUDOEPHEDRINE HYDROCHLORIDE
     Dosage: TABLET (EXTENDED- RELEASE)
     Route: 048
  188. CETIRIZINE HYDROCHLORIDE\PSEUDOEPHEDRINE HYDROCHLORIDE [Concomitant]
     Active Substance: CETIRIZINE HYDROCHLORIDE\PSEUDOEPHEDRINE HYDROCHLORIDE
     Route: 048
  189. RITUXIMAB [Concomitant]
     Active Substance: RITUXIMAB
     Indication: Rheumatoid arthritis
     Route: 042
  190. RITUXIMAB [Concomitant]
     Active Substance: RITUXIMAB
     Route: 058
  191. RITUXIMAB [Concomitant]
     Active Substance: RITUXIMAB
     Route: 042
  192. RITUXIMAB [Concomitant]
     Active Substance: RITUXIMAB
     Route: 064
  193. SIMPONI [Concomitant]
     Active Substance: GOLIMUMAB
     Indication: Rheumatoid arthritis
     Route: 064
  194. SIMPONI [Concomitant]
     Active Substance: GOLIMUMAB
     Route: 058
  195. SIMPONI [Concomitant]
     Active Substance: GOLIMUMAB
     Route: 058
  196. SIMPONI [Concomitant]
     Active Substance: GOLIMUMAB
     Dosage: SOLUTION SUBCUTANEOUS
     Route: 058
  197. SIMPONI [Concomitant]
     Active Substance: GOLIMUMAB
  198. SIMPONI [Concomitant]
     Active Substance: GOLIMUMAB
     Route: 058
  199. SIMPONI [Concomitant]
     Active Substance: GOLIMUMAB
     Route: 058
  200. SIMPONI [Concomitant]
     Active Substance: GOLIMUMAB
     Route: 058
  201. SIMPONI [Concomitant]
     Active Substance: GOLIMUMAB
     Route: 064
  202. SIMPONI [Concomitant]
     Active Substance: GOLIMUMAB
     Route: 042
  203. SIMPONI [Concomitant]
     Active Substance: GOLIMUMAB
     Route: 058
  204. SIMPONI [Concomitant]
     Active Substance: GOLIMUMAB
     Route: 058
  205. STELARA [Concomitant]
     Active Substance: USTEKINUMAB
     Indication: Rheumatoid arthritis
  206. STELARA [Concomitant]
     Active Substance: USTEKINUMAB
     Route: 064
  207. STELARA [Concomitant]
     Active Substance: USTEKINUMAB
  208. STELARA [Concomitant]
     Active Substance: USTEKINUMAB
     Dosage: SOLUTION SUBCUTANEOUS
     Route: 058
  209. STELARA [Concomitant]
     Active Substance: USTEKINUMAB
     Route: 058
  210. SULFAMETHOXAZOLE [Concomitant]
     Active Substance: SULFAMETHOXAZOLE
     Indication: Product used for unknown indication
  211. SULFASALAZINE [Concomitant]
     Active Substance: SULFASALAZINE
     Indication: Rheumatoid arthritis
     Route: 048
  212. SULFASALAZINE [Concomitant]
     Active Substance: SULFASALAZINE
     Route: 048
  213. SULFASALAZINE [Concomitant]
     Active Substance: SULFASALAZINE
     Route: 048
  214. SULFASALAZINE [Concomitant]
     Active Substance: SULFASALAZINE
     Route: 048
  215. SULFASALAZINE [Concomitant]
     Active Substance: SULFASALAZINE
     Route: 048
  216. SULFASALAZINE [Concomitant]
     Active Substance: SULFASALAZINE
     Route: 048
  217. SULFASALAZINE [Concomitant]
     Active Substance: SULFASALAZINE
     Route: 048
  218. SULFASALAZINE [Concomitant]
     Active Substance: SULFASALAZINE
     Route: 048
  219. SULFASALAZINE [Concomitant]
     Active Substance: SULFASALAZINE
     Route: 048
  220. SULFASALAZINE [Concomitant]
     Active Substance: SULFASALAZINE
     Route: 048
  221. SULFASALAZINE [Concomitant]
     Active Substance: SULFASALAZINE
     Route: 058
  222. SULFASALAZINE [Concomitant]
     Active Substance: SULFASALAZINE
     Route: 048
  223. SULFASALAZINE [Concomitant]
     Active Substance: SULFASALAZINE
     Route: 058
  224. SULFASALAZINE [Concomitant]
     Active Substance: SULFASALAZINE
  225. SULFASALAZINE [Concomitant]
     Active Substance: SULFASALAZINE
     Route: 048
  226. SULFASALAZINE [Concomitant]
     Active Substance: SULFASALAZINE
     Route: 048
  227. TOCILIZUMAB [Concomitant]
     Active Substance: TOCILIZUMAB
     Indication: Rheumatoid arthritis
     Route: 058
  228. TOCILIZUMAB [Concomitant]
     Active Substance: TOCILIZUMAB
     Route: 064
  229. TOCILIZUMAB [Concomitant]
     Active Substance: TOCILIZUMAB
     Route: 042
  230. TOCILIZUMAB [Concomitant]
     Active Substance: TOCILIZUMAB
     Route: 042
  231. TOCILIZUMAB [Concomitant]
     Active Substance: TOCILIZUMAB
     Route: 061
  232. VITAMIN C [Concomitant]
     Active Substance: ASCORBIC ACID
     Indication: Product used for unknown indication
     Route: 048
  233. VITAMIN D3 [Concomitant]
     Active Substance: CHOLECALCIFEROL
     Indication: Product used for unknown indication
  234. PREDNISONE [Concomitant]
     Active Substance: PREDNISONE
     Indication: Rheumatoid arthritis
     Route: 048
  235. PREDNISONE [Concomitant]
     Active Substance: PREDNISONE
     Route: 064
  236. XELJANZ [Concomitant]
     Active Substance: TOFACITINIB CITRATE
     Indication: Rheumatoid arthritis

REACTIONS (1)
  - Death [Fatal]
